FAERS Safety Report 24211079 (Version 5)
Quarter: 2025Q4

REPORT INFORMATION
  Report Type: Report from Study
  Country: CN (occurrence: CN)
  Receive Date: 20240814
  Receipt Date: 20251031
  Transmission Date: 20260117
  Serious: Yes (Other)
  Sender: ROCHE
  Company Number: CN-ROCHE-10000049746

PATIENT
  Age: 68 Year
  Sex: Female
  Weight: 51 kg

DRUGS (64)
  1. POLIVY [Suspect]
     Active Substance: POLATUZUMAB VEDOTIN-PIIQ
     Indication: Diffuse large B-cell lymphoma
     Route: 042
     Dates: start: 20240126, end: 20240126
  2. POLIVY [Suspect]
     Active Substance: POLATUZUMAB VEDOTIN-PIIQ
     Route: 042
     Dates: start: 20240501, end: 20240501
  3. POLIVY [Suspect]
     Active Substance: POLATUZUMAB VEDOTIN-PIIQ
     Route: 042
     Dates: start: 20240402, end: 20240402
  4. RITUXIMAB [Suspect]
     Active Substance: RITUXIMAB
     Indication: Diffuse large B-cell lymphoma
     Route: 042
     Dates: start: 20240125, end: 20240125
  5. RITUXIMAB [Suspect]
     Active Substance: RITUXIMAB
     Route: 042
     Dates: start: 20240226, end: 20240226
  6. CISPLATIN [Suspect]
     Active Substance: CISPLATIN
     Indication: Diffuse large B-cell lymphoma
     Route: 042
     Dates: start: 20240126, end: 20240127
  7. DECITABINE [Suspect]
     Active Substance: DECITABINE
     Indication: Diffuse large B-cell lymphoma
     Route: 042
     Dates: start: 20240120, end: 20240122
  8. GEMCITABINE [Suspect]
     Active Substance: GEMCITABINE
     Indication: Diffuse large B-cell lymphoma
     Route: 042
     Dates: start: 20240126, end: 20240127
  9. GEMCITABINE [Suspect]
     Active Substance: GEMCITABINE
     Route: 042
     Dates: start: 20240502, end: 20240502
  10. GEMCITABINE [Suspect]
     Active Substance: GEMCITABINE
     Route: 042
     Dates: start: 20240403, end: 20240403
  11. ZUBERITAMAB [Suspect]
     Active Substance: ZUBERITAMAB
     Indication: Diffuse large B-cell lymphoma
     Route: 042
     Dates: end: 20240401
  12. ZUBERITAMAB [Suspect]
     Active Substance: ZUBERITAMAB
     Route: 065
  13. OXALIPLATIN [Suspect]
     Active Substance: OXALIPLATIN
     Indication: Diffuse large B-cell lymphoma
     Route: 042
     Dates: end: 20240403
  14. OXALIPLATIN [Suspect]
     Active Substance: OXALIPLATIN
     Route: 042
     Dates: start: 20240502, end: 20240502
  15. OXALIPLATIN [Suspect]
     Active Substance: OXALIPLATIN
     Route: 065
  16. OMEPRAZOLE SODIUM [Concomitant]
     Active Substance: OMEPRAZOLE SODIUM
  17. PEGYLATED RECOMBINANT HUMAN GRANULOCYTE COLONY STIMULATING FACTOR [Concomitant]
  18. HEPARIN SODIUM [Concomitant]
     Active Substance: HEPARIN SODIUM
  19. VALACYCLOVIR HYDROCHLORIDE [Concomitant]
     Active Substance: VALACYCLOVIR HYDROCHLORIDE
     Route: 048
     Dates: start: 20240108
  20. ALFACALCIDOL [Concomitant]
     Active Substance: ALFACALCIDOL
     Route: 048
     Dates: start: 20240112
  21. HERBALS\DIAMMONIUM GLYCYRRHIZINATE [Concomitant]
     Active Substance: HERBALS\DIAMMONIUM GLYCYRRHIZINATE
     Route: 048
     Dates: start: 20240201
  22. MAGNESIUM ISOGLYCYRRHIZINATE [Concomitant]
     Active Substance: MAGNESIUM ISOGLYCYRRHIZINATE
     Route: 042
     Dates: start: 20240501
  23. SODIUM BICARBONATE [Concomitant]
     Active Substance: SODIUM BICARBONATE
     Route: 042
     Dates: start: 20240501, end: 20240502
  24. CALCIUM GLUCONATE [Concomitant]
     Active Substance: CALCIUM GLUCONATE
     Route: 042
     Dates: start: 20240330, end: 20240501
  25. DIPHENHYDRAMINE HYDROCHLORIDE [Concomitant]
     Active Substance: DIPHENHYDRAMINE HYDROCHLORIDE
     Route: 042
     Dates: start: 20240430, end: 20240501
  26. METOCLOPRAMIDE HYDROCHLORIDE [Concomitant]
     Active Substance: METOCLOPRAMIDE HYDROCHLORIDE
     Route: 042
     Dates: start: 20240502, end: 20240502
  27. VITAMIN B6 [Concomitant]
     Active Substance: PYRIDOXINE HYDROCHLORIDE
     Route: 042
     Dates: start: 20240502, end: 20240502
  28. ESOMEPRAZOLE SODIUM [Concomitant]
     Active Substance: ESOMEPRAZOLE SODIUM
     Route: 042
     Dates: start: 20240502, end: 20240502
  29. POTASSIUM CHLORIDE [Concomitant]
     Active Substance: POTASSIUM CHLORIDE
     Route: 042
     Dates: start: 20240528, end: 20240528
  30. Simethicone emulsion [Concomitant]
     Route: 048
     Dates: start: 20240527, end: 20240527
  31. DEXAMETHASONE SODIUM PHOSPHATE [Concomitant]
     Active Substance: DEXAMETHASONE SODIUM PHOSPHATE
  32. GRANULOCYTE COLONY-STIMULATING FACTOR NOS [Concomitant]
     Active Substance: GRANULOCYTE COLONY-STIMULATING FACTOR NOS
  33. Glycerol Enema [Concomitant]
  34. TIOPRONIN [Concomitant]
     Active Substance: TIOPRONIN
  35. SODIUM CHLORIDE [Concomitant]
     Active Substance: SODIUM CHLORIDE
  36. LEVOFLOXACIN [Concomitant]
     Active Substance: LEVOFLOXACIN
  37. CLONAZEPAM [Concomitant]
     Active Substance: CLONAZEPAM
  38. DEXTROSE\SODIUM CHLORIDE [Concomitant]
     Active Substance: DEXTROSE\SODIUM CHLORIDE
  39. IMIPENEM AND CILASTATIN SODIUM [Concomitant]
     Active Substance: CILASTATIN SODIUM\IMIPENEM
  40. ETHAMSYLATE [Concomitant]
     Active Substance: ETHAMSYLATE
  41. VITAMIN K1 [Concomitant]
     Active Substance: PHYTONADIONE
  42. GABAPENTIN [Concomitant]
     Active Substance: GABAPENTIN
  43. COBAMAMIDE [Concomitant]
     Active Substance: COBAMAMIDE
  44. PREGABALIN [Concomitant]
     Active Substance: PREGABALIN
  45. LACTULOSE [Concomitant]
     Active Substance: LACTULOSE
  46. THYMALFASIN [Concomitant]
     Active Substance: THYMALFASIN
  47. ONDANSETRON HYDROCHLORIDE [Concomitant]
     Active Substance: ONDANSETRON HYDROCHLORIDE
  48. LORATADINE [Concomitant]
     Active Substance: LORATADINE
  49. DIAZEPAM [Concomitant]
     Active Substance: DIAZEPAM
  50. NETUPITANT AND PALONOSETRON HYDROCHLORIDE [Concomitant]
  51. DIOSMIN [Concomitant]
     Active Substance: DIOSMIN
  52. TORSEMIDE [Concomitant]
     Active Substance: TORSEMIDE
  53. HERBALS\DIAMMONIUM GLYCYRRHIZINATE [Concomitant]
     Active Substance: HERBALS\DIAMMONIUM GLYCYRRHIZINATE
  54. HUMAN IMMUNOGLOBULIN G [Concomitant]
     Active Substance: HUMAN IMMUNOGLOBULIN G
  55. ZOLPIDEM TARTRATE [Concomitant]
     Active Substance: ZOLPIDEM TARTRATE
  56. ADEMETIONINE BUTANEDISULFONATE [Concomitant]
     Active Substance: ADEMETIONINE BUTANEDISULFONATE
  57. LEVOFLOXACIN [Concomitant]
     Active Substance: LEVOFLOXACIN
  58. FOSFOMYCIN TROMETHAMINE [Concomitant]
     Active Substance: FOSFOMYCIN TROMETHAMINE
  59. METOCLOPRAMIDE [Concomitant]
     Active Substance: METOCLOPRAMIDE
  60. VITAMIN B6 [Concomitant]
     Active Substance: PYRIDOXINE HYDROCHLORIDE
  61. DEXAMETHASONE [Concomitant]
     Active Substance: DEXAMETHASONE
  62. VALACYCLOVIR HYDROCHLORIDE [Concomitant]
     Active Substance: VALACYCLOVIR HYDROCHLORIDE
  63. ONDANSETRON [Concomitant]
     Active Substance: ONDANSETRON
  64. DYCLONINE HYDROCHLORIDE [Concomitant]
     Active Substance: DYCLONINE HYDROCHLORIDE

REACTIONS (15)
  - Lymphocyte count decreased [Not Recovered/Not Resolved]
  - Leukopenia [Not Recovered/Not Resolved]
  - Neutropenia [Not Recovered/Not Resolved]
  - Anaemia [Not Recovered/Not Resolved]
  - Platelet count decreased [Not Recovered/Not Resolved]
  - Hypoproteinaemia [Not Recovered/Not Resolved]
  - Hyperlipidaemia [Recovered/Resolved]
  - Urinary tract infection [Recovered/Resolved]
  - Immunoglobulins decreased [Not Recovered/Not Resolved]
  - CD19 lymphocytes decreased [Not Recovered/Not Resolved]
  - Hypercholesterolaemia [Recovered/Resolved]
  - Constipation [Recovered/Resolved]
  - Hypokalaemia [Not Recovered/Not Resolved]
  - Asthenia [Not Recovered/Not Resolved]
  - COVID-19 [Recovered/Resolved]

NARRATIVE: CASE EVENT DATE: 20240129
